FAERS Safety Report 7764655-6 (Version None)
Quarter: 2011Q3

REPORT INFORMATION
  Report Type: 
  Country: None (occurrence: None)
  Receive Date: 20110921
  Receipt Date: 20110916
  Transmission Date: 20111222
  Serious: No
  Sender: FDA-Public Use
  Company Number: PHEH2011US01856

PATIENT
  Sex: Female

DRUGS (7)
  1. MAGNESIUM OXIDE [Concomitant]
     Dosage: 500 MG, BID
  2. OSCAL [Concomitant]
  3. TASIGNA [Suspect]
     Indication: CHRONIC MYELOID LEUKAEMIA
     Dosage: 400 MG, BID
     Route: 048
     Dates: start: 20110514
  4. AMBENE COMP [Concomitant]
  5. ONDANSETRON [Concomitant]
     Indication: NAUSEA
  6. PROTONIX [Concomitant]
  7. VITAMIN B-12 [Concomitant]

REACTIONS (1)
  - HEADACHE [None]
